FAERS Safety Report 23304400 (Version 2)
Quarter: 2023Q4

REPORT INFORMATION
  Report Type: Spontaneous
  Country: US (occurrence: US)
  Receive Date: 20231218
  Receipt Date: 20231225
  Transmission Date: 20240110
  Serious: Yes (Hospitalization, Other)
  Sender: FDA-Public Use
  Company Number: US-MACLEODS PHARMACEUTICALS US LTD-MAC2023044780

PATIENT

DRUGS (1)
  1. TRIAMCINOLONE ACETONIDE [Suspect]
     Active Substance: TRIAMCINOLONE ACETONIDE
     Indication: Bursitis
     Dosage: 80 MILLIGRAM, INJECTION
     Route: 065

REACTIONS (3)
  - Soft tissue atrophy [Recovered/Resolved]
  - Cutaneous contour deformity [Recovered/Resolved]
  - Injection site atrophy [Recovered/Resolved]
